FAERS Safety Report 8616015-3 (Version None)
Quarter: 2012Q3

REPORT INFORMATION
  Report Type: 
  Country: None (occurrence: None)
  Receive Date: 20120823
  Receipt Date: 20120815
  Transmission Date: 20120928
  Serious: Yes (Hospitalization, Disabling, Other)
  Sender: FDA-Public Use
  Company Number: US-009507513-1102USA02524

PATIENT

DRUGS (3)
  1. FOSAMAX [Suspect]
     Indication: OSTEOPOROSIS
     Dosage: 10 MG, QD
     Route: 048
     Dates: start: 19970301, end: 20010828
  2. FOSAMAX [Suspect]
     Dosage: 70 MG, QW
     Route: 048
     Dates: start: 20010901, end: 20070328
  3. PHENOBARBITAL TAB [Concomitant]
     Indication: CONVULSION
     Dosage: UNK
     Dates: end: 20090701

REACTIONS (34)
  - CONTUSION [None]
  - OESOPHAGITIS ULCERATIVE [None]
  - HAEMORRHOIDS [None]
  - TOOTH FRACTURE [None]
  - TENOSYNOVITIS STENOSANS [None]
  - HEPATIC CYST [None]
  - TIBIA FRACTURE [None]
  - ANKLE FRACTURE [None]
  - ABDOMINAL PAIN UPPER [None]
  - MIGRAINE [None]
  - GINGIVITIS [None]
  - OSTEOPENIA [None]
  - OSTEOPOROSIS POSTMENOPAUSAL [None]
  - GINGIVAL ABSCESS [None]
  - GASTRITIS [None]
  - PERIPHERAL VASCULAR DISORDER [None]
  - HAND FRACTURE [None]
  - ODYNOPHAGIA [None]
  - BEHCET'S SYNDROME [None]
  - FALL [None]
  - CATARACT [None]
  - JAW DISORDER [None]
  - RECTAL POLYP [None]
  - URINARY INCONTINENCE [None]
  - OSTEONECROSIS OF JAW [None]
  - ULCER [None]
  - HIATUS HERNIA [None]
  - PULMONARY PNEUMATOCELE [None]
  - LIGAMENT SPRAIN [None]
  - BARRETT'S OESOPHAGUS [None]
  - DENTAL CARIES [None]
  - RADIUS FRACTURE [None]
  - HYPERCHOLESTEROLAEMIA [None]
  - GASTROOESOPHAGEAL REFLUX DISEASE [None]
